FAERS Safety Report 11927298 (Version 1)
Quarter: 2016Q1

REPORT INFORMATION
  Report Type: Spontaneous
  Country: JP (occurrence: JP)
  Receive Date: 20160119
  Receipt Date: 20160119
  Transmission Date: 20160526
  Serious: Yes (Other)
  Sender: FDA-Public Use
  Company Number: JP-BAYER-2016-003976

PATIENT
  Age: 75 Year
  Sex: Female
  Weight: 45 kg

DRUGS (11)
  1. LYRICA [Suspect]
     Active Substance: PREGABALIN
     Indication: POST HERPETIC NEURALGIA
     Dosage: 50 MG, BID
     Route: 048
     Dates: start: 20150926, end: 20151021
  2. AVELOX [Suspect]
     Active Substance: MOXIFLOXACIN HYDROCHLORIDE
     Indication: PRODUCT USED FOR UNKNOWN INDICATION
     Dosage: 400 MG, QD
     Route: 048
     Dates: start: 20151013, end: 20151017
  3. LANSOPRAZOLE. [Concomitant]
     Active Substance: LANSOPRAZOLE
     Dosage: 15 MG, QD
     Route: 048
  4. LYRICA [Suspect]
     Active Substance: PREGABALIN
     Indication: POST HERPETIC NEURALGIA
     Dosage: 25 MG, BID
     Route: 048
     Dates: start: 20150821, end: 20150914
  5. FUROSEMIDE. [Concomitant]
     Active Substance: FUROSEMIDE
     Dosage: 20 MG, QD
     Dates: start: 20151017, end: 20151105
  6. LYRICA [Suspect]
     Active Substance: PREGABALIN
     Indication: POST HERPETIC NEURALGIA
     Dosage: 75 MG, UNK
     Route: 048
     Dates: start: 20150915, end: 20150917
  7. FUROSEMIDE. [Concomitant]
     Active Substance: FUROSEMIDE
     Dosage: 40 MG, QD
     Route: 048
     Dates: start: 20151013, end: 20151016
  8. LYRICA [Suspect]
     Active Substance: PREGABALIN
     Indication: POST HERPETIC NEURALGIA
     Dosage: 50 MG, BID
     Route: 048
     Dates: start: 20150918, end: 20150922
  9. LYRICA [Suspect]
     Active Substance: PREGABALIN
     Indication: POST HERPETIC NEURALGIA
     Dosage: 75 MG, BID
     Route: 048
     Dates: start: 20150923, end: 20150925
  10. RIMATIL [Concomitant]
     Active Substance: BUCILLAMINE
     Dosage: 200 MG, QD
     Route: 048
  11. PREDONINE [Concomitant]
     Active Substance: PREDNISOLONE\PREDNISOLONE ACETATE\PREDNISOLONE SODIUM SUCCINATE
     Dosage: 5 MG, QD
     Route: 048
     Dates: start: 20151008

REACTIONS (8)
  - Coma [Recovering/Resolving]
  - Loss of consciousness [Recovering/Resolving]
  - Disorientation [Unknown]
  - Seizure [Unknown]
  - Confusional state [Recovered/Resolved]
  - Depressed level of consciousness [Recovering/Resolving]
  - Creatinine renal clearance decreased [Unknown]
  - Myoclonus [Unknown]

NARRATIVE: CASE EVENT DATE: 20151017
